APPROVED DRUG PRODUCT: INQOVI
Active Ingredient: CEDAZURIDINE; DECITABINE
Strength: 100MG;35MG
Dosage Form/Route: TABLET;ORAL
Application: N212576 | Product #001
Applicant: TAIHO ONCOLOGY INC
Approved: Jul 7, 2020 | RLD: Yes | RS: Yes | Type: RX

PATENTS:
Patent 12239653 | Expires: Feb 24, 2041
Patent 12239653 | Expires: Feb 24, 2041
Patent 8618075 | Expires: Oct 16, 2028
Patent 8618075 | Expires: Oct 16, 2028
Patent 8268800 | Expires: Aug 22, 2030
Patent 8268800 | Expires: Aug 22, 2030
Patent 8268800 | Expires: Aug 22, 2030
Patent 8268800 | Expires: Aug 22, 2030
Patent 12195496 | Expires: Oct 7, 2040
Patent 11963971 | Expires: Feb 24, 2041
Patent 9567363 | Expires: Oct 16, 2028

EXCLUSIVITY:
Code: ODE-316 | Date: Jul 7, 2027